APPROVED DRUG PRODUCT: LAMIVUDINE AND ZIDOVUDINE
Active Ingredient: LAMIVUDINE; ZIDOVUDINE
Strength: 150MG;300MG
Dosage Form/Route: TABLET;ORAL
Application: A079124 | Product #001 | TE Code: AB
Applicant: HETERO LABS LTD UNIT III
Approved: Sep 17, 2015 | RLD: No | RS: Yes | Type: RX